FAERS Safety Report 15741518 (Version 4)
Quarter: 2019Q1

REPORT INFORMATION
  Report Type: Spontaneous
  Country: US (occurrence: US)
  Receive Date: 20181219
  Receipt Date: 20190301
  Transmission Date: 20190417
  Serious: Yes (Other)
  Sender: FDA-Public Use
  Company Number: US-SA-2018SA343033

PATIENT
  Age: 47 Year
  Sex: Female
  Weight: 63 kg

DRUGS (4)
  1. TOPROL XL [Concomitant]
     Active Substance: METOPROLOL SUCCINATE
     Dosage: UNK UNK, UNK
     Route: 065
     Dates: start: 2010
  2. TAXOTERE [Suspect]
     Active Substance: DOCETAXEL
     Indication: BREAST CANCER FEMALE
     Dosage: UNK UNK, Q3W
     Route: 042
     Dates: start: 20121029, end: 20121029
  3. TAXOTERE [Suspect]
     Active Substance: DOCETAXEL
     Dosage: UNK UNK, UNK
     Route: 042
     Dates: start: 20130103, end: 20130103
  4. PARAPLATIN [Concomitant]
     Active Substance: CARBOPLATIN
     Dosage: UNK UNK, UNK
     Route: 065

REACTIONS (1)
  - Alopecia [Recovering/Resolving]

NARRATIVE: CASE EVENT DATE: 20121029
